FAERS Safety Report 8911820 (Version 1)
Quarter: 2012Q4

REPORT INFORMATION
  Report Type: 
  Country: FR (occurrence: FR)
  Receive Date: 20121116
  Receipt Date: 20121116
  Transmission Date: 20130627
  Serious: Yes (Hospitalization)
  Sender: FDA-Public Use
  Company Number: FR-JNJFOC-20121105040

PATIENT
  Age: 40 Year
  Sex: Female

DRUGS (7)
  1. REMICADE [Suspect]
     Indication: ANKYLOSING SPONDYLITIS
     Dosage: 365 mg
     Route: 042
     Dates: start: 20121001
  2. SEROPLEX [Concomitant]
     Route: 065
  3. ATARAX [Concomitant]
     Route: 065
  4. DIANE [Concomitant]
     Route: 065
  5. NUCTALON [Concomitant]
     Route: 065
  6. IXPRIM [Concomitant]
     Route: 065
  7. FELDENE [Concomitant]
     Route: 065

REACTIONS (1)
  - Angioedema [Recovered/Resolved]
